FAERS Safety Report 8805165 (Version 1)
Quarter: 2012Q4

REPORT INFORMATION
  Report Type: 
  Country: DK (occurrence: DK)
  Receive Date: 20120924
  Receipt Date: 20120924
  Transmission Date: 20130627
  Serious: Yes (Other)
  Sender: FDA-Public Use
  Company Number: DK-ABBOTT-12P-044-0915690-00

PATIENT
  Age: 65 Year
  Sex: Male
  Weight: 74.8 kg

DRUGS (7)
  1. DUODOPA [Suspect]
     Indication: PRODUCT USED FOR UNKNOWN INDICATION
     Dates: start: 20101012
  2. AVIDART [Concomitant]
     Indication: PRODUCT USED FOR UNKNOWN INDICATION
  3. DETRUSITOL RETARD [Concomitant]
     Indication: PRODUCT USED FOR UNKNOWN INDICATION
  4. TAMSIN [Concomitant]
     Indication: PRODUCT USED FOR UNKNOWN INDICATION
  5. SIFROL [Concomitant]
     Indication: PRODUCT USED FOR UNKNOWN INDICATION
  6. IMOZOP [Concomitant]
     Indication: PRODUCT USED FOR UNKNOWN INDICATION
  7. BETOLVEX [Concomitant]
     Indication: VITAMIN B12 DEFICIENCY

REACTIONS (2)
  - Polyneuropathy [Recovering/Resolving]
  - Anaemia vitamin B12 deficiency [Not Recovered/Not Resolved]
